FAERS Safety Report 10600874 (Version 1)
Quarter: 2014Q4

REPORT INFORMATION
  Report Type: Spontaneous
  Country: US (occurrence: None)
  Receive Date: 20141120
  Receipt Date: 20141120
  Transmission Date: 20150529
  Serious: Yes (Death, Hospitalization)
  Sender: FDA-Public Use
  Company Number: INT_00521_2014

PATIENT
  Age: 47 Year
  Sex: Female

DRUGS (2)
  1. RADIOTRACER [Suspect]
     Active Substance: UNSPECIFIED INGREDIENT
     Indication: PRODUCT USED FOR UNKNOWN INDICATION
     Dosage: DF
  2. PACLITAXEL (HQ SPECIALTY) [Suspect]
     Active Substance: PACLITAXEL
     Indication: BREAST CANCER
     Dosage: DF, NOT OTHERWISE SPECIFIED
     Route: 042

REACTIONS (8)
  - Flushing [None]
  - Unresponsive to stimuli [None]
  - Arteriospasm coronary [None]
  - Pulseless electrical activity [None]
  - Myocardial infarction [None]
  - Drug hypersensitivity [None]
  - Ventricular fibrillation [None]
  - Kounis syndrome [None]
